FAERS Safety Report 6150908-4 (Version None)
Quarter: 2009Q2

REPORT INFORMATION
  Report Type: 
  Country: None (occurrence: None)
  Receive Date: 20090408
  Receipt Date: 20090326
  Transmission Date: 20091009
  Serious: Yes (Life-Threatening)
  Sender: FDA-Public Use
  Company Number: AE-2009-001

PATIENT
  Age: 85 Year
  Sex: Male
  Weight: 55 kg

DRUGS (11)
  1. METOPROLOL TARTRATE [Suspect]
     Indication: HYPERTENSION
     Dosage: 50MGQDORAL
     Route: 048
  2. DIGITOXIN TAB [Suspect]
     Indication: ACCIDENTAL EXPOSURE
     Dosage: 0.07MGQDORAL
     Route: 048
     Dates: start: 20081221, end: 20081221
  3. MELPERON [Suspect]
     Indication: ACCIDENTAL EXPOSURE
     Dosage: 50MG QD ORAL
     Route: 048
     Dates: start: 20081221, end: 20081221
  4. PENTAETHRITYL TETRANITRATE [Suspect]
     Indication: ACCIDENTAL EXPOSURE
     Dosage: 80MG QD ORAL
     Route: 048
     Dates: start: 20081221, end: 20081221
  5. RISPERIDONE [Suspect]
     Indication: ACCIDENTAL EXPOSURE
     Dosage: 2MG QD ORAL
     Route: 048
     Dates: start: 20081221, end: 20081221
  6. CLOPIDOGREL [Concomitant]
  7. PANCREATIN [Concomitant]
  8. METAMIZOLE [Concomitant]
  9. OMEPRAZOLE [Concomitant]
  10. RAMIPRIL [Concomitant]
  11. TORSEMIDE [Concomitant]

REACTIONS (2)
  - DRUG INTERACTION [None]
  - SOMNOLENCE [None]
